FAERS Safety Report 16585727 (Version 1)
Quarter: 2019Q3

REPORT INFORMATION
  Report Type: Spontaneous
  Country: US (occurrence: US)
  Receive Date: 20190717
  Receipt Date: 20190717
  Transmission Date: 20191004
  Serious: Yes (Other)
  Sender: FDA-Public Use
  Company Number: US-FOUNDATIONCONSUMERHC-2019-US-004093

PATIENT
  Age: 28 Year
  Sex: Female
  Weight: 64.86 kg

DRUGS (1)
  1. PLAN B ONE-STEP [Suspect]
     Active Substance: LEVONORGESTREL
     Indication: POST COITAL CONTRACEPTION
     Dosage: 1.5 MG TAKEN 2 SEPARATE OCCASIONS
     Route: 048
     Dates: start: 20190212, end: 20190215

REACTIONS (4)
  - Pregnancy after post coital contraception [Unknown]
  - Drug ineffective [Unknown]
  - Mood swings [Not Recovered/Not Resolved]
  - Malaise [Not Recovered/Not Resolved]

NARRATIVE: CASE EVENT DATE: 20190212
